FAERS Safety Report 6503090-5 (Version None)
Quarter: 2009Q4

REPORT INFORMATION
  Report Type: 
  Country: None (occurrence: None)
  Receive Date: 20091201
  Receipt Date: 20090528
  Transmission Date: 20100525
  Serious: Yes (Other)
  Sender: FDA-Public Use
  Company Number: 196125USA

PATIENT

DRUGS (3)
  1. CARBOPLATIN [Suspect]
     Indication: BREAST CANCER
  2. DOCETAXEL [Suspect]
     Indication: BREAST CANCER
     Dosage: INTRAVENOUS (NOT OTHERWISE SPECIFIED)
     Route: 042
  3. TRASTUZUMAB [Suspect]
     Indication: BREAST CANCER

REACTIONS (1)
  - ANAEMIA [None]
